FAERS Safety Report 19918806 (Version 1)
Quarter: 2021Q4

REPORT INFORMATION
  Report Type: Spontaneous
  Country: CN (occurrence: CN)
  Receive Date: 20211005
  Receipt Date: 20211005
  Transmission Date: 20220303
  Serious: Yes (Other)
  Sender: FDA-Public Use
  Company Number: CN-BAXTER-2021BAX031020

PATIENT
  Age: 57 Year
  Sex: Female

DRUGS (7)
  1. MANNITOL [Suspect]
     Active Substance: MANNITOL
     Indication: Craniotomy
     Route: 041
     Dates: start: 20210825, end: 20210903
  2. MANNITOL [Suspect]
     Active Substance: MANNITOL
     Indication: Polyuria
     Route: 041
     Dates: start: 20210906, end: 20210909
  3. MANNITOL [Suspect]
     Active Substance: MANNITOL
     Indication: Diuretic therapy
     Route: 041
     Dates: start: 20210909, end: 20210912
  4. MANNITOL [Suspect]
     Active Substance: MANNITOL
     Dosage: DOSE RE-INTRODUCED
     Route: 041
     Dates: start: 20210917, end: 20210919
  5. FUROSEMIDE [Suspect]
     Active Substance: FUROSEMIDE
     Indication: Craniotomy
     Route: 041
     Dates: start: 20210825, end: 20210903
  6. FUROSEMIDE [Suspect]
     Active Substance: FUROSEMIDE
     Indication: Polyuria
     Route: 041
     Dates: start: 20210906, end: 20210912
  7. FUROSEMIDE [Suspect]
     Active Substance: FUROSEMIDE
     Indication: Diuretic therapy

REACTIONS (4)
  - Blood creatinine increased [Unknown]
  - Renal impairment [Unknown]
  - Infection [Unknown]
  - Condition aggravated [Unknown]

NARRATIVE: CASE EVENT DATE: 20210912
